FAERS Safety Report 6051038-2 (Version None)
Quarter: 2009Q1

REPORT INFORMATION
  Report Type: 
  Country: None (occurrence: None)
  Receive Date: 20090126
  Receipt Date: 20080220
  Transmission Date: 20090719
  Serious: No
  Sender: FDA-Public Use
  Company Number: US-TYCO HEALTHCARE/MALLINCKRODT-T200800274

PATIENT

DRUGS (8)
  1. OPTIRAY 320 [Suspect]
     Indication: CATHETERISATION CARDIAC
     Dosage: 205 ML, SINGLE
     Dates: start: 20080220, end: 20080220
  2. SIMAVASTATIN [Concomitant]
  3. TERAZOSIN HCL [Concomitant]
  4. HYDROCHLOROTHIAZIDE [Concomitant]
  5. PAROXETINE HCL [Concomitant]
  6. DIAZEPAM [Concomitant]
  7. COZAAR [Concomitant]
  8. MIRAPEX [Concomitant]

REACTIONS (1)
  - CATHETER THROMBOSIS [None]
